FAERS Safety Report 12444805 (Version 4)
Quarter: 2016Q3

REPORT INFORMATION
  Report Type: Spontaneous
  Country: CN (occurrence: CN)
  Receive Date: 20160607
  Receipt Date: 20160704
  Transmission Date: 20161109
  Serious: Yes (Other)
  Sender: FDA-Public Use
  Company Number: CN-ASTRAZENECA-2016SE59164

PATIENT
  Age: 61 Year
  Sex: Male

DRUGS (4)
  1. BRILINTA [Suspect]
     Active Substance: TICAGRELOR
     Dosage: REDUCED LITTLE PREVIOUS DOSAGE
     Route: 048
  2. BRILINTA [Suspect]
     Active Substance: TICAGRELOR
     Route: 048
  3. ASPIRIN. [Concomitant]
     Active Substance: ASPIRIN
     Dosage: 100.0MG UNKNOWN
  4. BRILINTA [Suspect]
     Active Substance: TICAGRELOR
     Route: 048

REACTIONS (13)
  - Chest discomfort [Recovered/Resolved]
  - Appendicitis [Unknown]
  - Blood count abnormal [Unknown]
  - Visual acuity reduced [Not Recovered/Not Resolved]
  - Joint crepitation [Not Recovered/Not Resolved]
  - Gastritis [Recovering/Resolving]
  - Chromaturia [Unknown]
  - Increased tendency to bruise [Unknown]
  - Haemorrhage [Not Recovered/Not Resolved]
  - Diarrhoea [Unknown]
  - Abdominal discomfort [Recovered/Resolved]
  - Haemorrhage subcutaneous [Unknown]
  - Dyspnoea [Unknown]

NARRATIVE: CASE EVENT DATE: 20160527
